FAERS Safety Report 13912108 (Version 1)
Quarter: 2017Q3

REPORT INFORMATION
  Report Type: Not Available
  Country: CN (occurrence: CN)
  Receive Date: 20170828
  Receipt Date: 20170828
  Transmission Date: 20171127
  Serious: Yes (Life-Threatening, Hospitalization)
  Sender: FDA-Public Use
  Company Number: CN-ANIPHARMA-2017-CN-000062

PATIENT
  Age: 37 Year
  Sex: Male

DRUGS (1)
  1. PROPAFENONE HYDROCHLORIDE (NON-SPECIFC) [Suspect]
     Active Substance: PROPAFENONE HYDROCHLORIDE
     Dosage: 5000MG ONCE

REACTIONS (3)
  - Suicide attempt [Unknown]
  - Cardiac arrest [Recovered/Resolved]
  - Hypocalcaemia [Unknown]
